FAERS Safety Report 11746393 (Version 2)
Quarter: 2016Q3

REPORT INFORMATION
  Report Type: Spontaneous
  Country: BR (occurrence: BR)
  Receive Date: 20151117
  Receipt Date: 20160801
  Transmission Date: 20161109
  Serious: Yes (Other)
  Sender: FDA-Public Use
  Company Number: BR-VALIDUS PHARMACEUTICALS LLC-BR-2015VAL000710

PATIENT

DRUGS (1)
  1. PARLODEL [Suspect]
     Active Substance: BROMOCRIPTINE MESYLATE
     Indication: BLOOD PROLACTIN INCREASED
     Dosage: 0.5 DF, QOD
     Route: 048
     Dates: start: 1988

REACTIONS (23)
  - Hypersensitivity [Not Recovered/Not Resolved]
  - Tinnitus [Not Recovered/Not Resolved]
  - Cataract [Unknown]
  - Mitral valve stenosis [Unknown]
  - Vision blurred [Unknown]
  - Keratorhexis [Not Recovered/Not Resolved]
  - Fall [Recovering/Resolving]
  - Joint injury [Recovering/Resolving]
  - Peripheral swelling [Unknown]
  - Nausea [Unknown]
  - Aptyalism [Not Recovered/Not Resolved]
  - Fibromyalgia [Not Recovered/Not Resolved]
  - Off label use [Unknown]
  - Skin discolouration [Not Recovered/Not Resolved]
  - Expired product administered [Unknown]
  - Hepatic steatosis [Unknown]
  - Hypoacusis [Not Recovered/Not Resolved]
  - Lacrimation decreased [Not Recovered/Not Resolved]
  - Pain [Recovering/Resolving]
  - Dizziness [Unknown]
  - Diabetes mellitus [Unknown]
  - Dry eye [Not Recovered/Not Resolved]
  - Loose tooth [Not Recovered/Not Resolved]

NARRATIVE: CASE EVENT DATE: 2004
